FAERS Safety Report 5893433-8 (Version None)
Quarter: 2008Q3

REPORT INFORMATION
  Report Type: 
  Country: None (occurrence: None)
  Receive Date: 20080923
  Receipt Date: 20080916
  Transmission Date: 20090109
  Serious: Yes (Other)
  Sender: FDA-Public Use
  Company Number: JP-ASTRAZENECA-2008SE04439

PATIENT
  Age: 25 Year

DRUGS (3)
  1. BLOPRESS TABLETS [Suspect]
     Route: 048
     Dates: start: 20060101, end: 20060101
  2. DEXAMETHASONE [Suspect]
     Route: 048
     Dates: start: 20060101, end: 20060101
  3. ETHANOL [Suspect]
     Route: 048
     Dates: start: 20060101, end: 20060101

REACTIONS (3)
  - INTENTIONAL OVERDOSE [None]
  - SUICIDE ATTEMPT [None]
  - VOMITING [None]
